FAERS Safety Report 10214856 (Version 1)
Quarter: 2014Q2

REPORT INFORMATION
  Report Type: Spontaneous
  Country: AU (occurrence: AU)
  Receive Date: 20140603
  Receipt Date: 20140603
  Transmission Date: 20141212
  Serious: Yes (Other)
  Sender: FDA-Public Use
  Company Number: AU-BAXTER-2014BAX027088

PATIENT
  Age: 72 Year
  Sex: Female

DRUGS (1)
  1. KIOVIG NORMAL IMMUNOGLOBULIN (HUMAN) 10G/100ML FOR INTRAVENOUS USE INJ [Suspect]
     Indication: IMMUNE THROMBOCYTOPENIC PURPURA
     Route: 065
     Dates: start: 20140520

REACTIONS (2)
  - Back pain [Recovered/Resolved]
  - Chills [Recovered/Resolved]
